FAERS Safety Report 7998373 (Version 3)
Quarter: 2014Q1

REPORT INFORMATION
  Report Type: Spontaneous
  Country: US (occurrence: US)
  Receive Date: 20110620
  Receipt Date: 20140321
  Transmission Date: 20141002
  Serious: Yes (Life-Threatening, Other)
  Sender: FDA-Public Use
  Company Number: US-ASTRAZENECA-2011SE36611

PATIENT
  Age: 61 Year
  Sex: Female
  Weight: 74.8 kg

DRUGS (23)
  1. TOPROL XL [Suspect]
     Indication: HYPERTENSION
     Route: 048
  2. TOPROL XL [Suspect]
     Indication: HYPERTENSION
     Route: 048
  3. TOPROL XL [Suspect]
     Indication: HYPERTENSION
     Dosage: CUT THE 25 MG TABLETS IN HALF AND TAKE 12.5MG DAILY
     Route: 048
  4. TOPROL XL [Suspect]
     Indication: HYPERTENSION
     Dosage: GENERIC
     Route: 048
  5. ARIMIDEX [Suspect]
     Indication: NEOPLASM MALIGNANT
     Route: 048
     Dates: start: 201007, end: 20140212
  6. ARIMIDEX [Suspect]
     Indication: NEOPLASM MALIGNANT
     Route: 048
     Dates: start: 20140217, end: 20140318
  7. ARIMIDEX [Suspect]
     Indication: NEOPLASM MALIGNANT
     Dosage: GENERIC
     Dates: start: 2012
  8. METOPROLOL TARTRATE [Suspect]
     Indication: HYPERTENSION
     Dosage: GENERIC
  9. TAXOL [Suspect]
  10. GABAPENTIN [Suspect]
     Indication: NEUROPATHY PERIPHERAL
     Dosage: GENERIC, 100 MG DAILY
     Route: 048
  11. GABAPENTIN [Suspect]
     Indication: NERVOUS SYSTEM DISORDER
     Dosage: GENERIC, 100 MG DAILY
     Route: 048
  12. GABAPENTIN [Suspect]
     Indication: LYMPHOEDEMA
     Dosage: GENERIC, 100 MG DAILY
     Route: 048
  13. GABAPENTIN [Suspect]
     Indication: NEUROPATHY PERIPHERAL
     Dosage: GENERIC, 900 MG DAILY
     Route: 048
  14. GABAPENTIN [Suspect]
     Indication: NERVOUS SYSTEM DISORDER
     Dosage: GENERIC, 900 MG DAILY
     Route: 048
  15. GABAPENTIN [Suspect]
     Indication: LYMPHOEDEMA
     Dosage: GENERIC, 900 MG DAILY
     Route: 048
  16. GABAPENTIN [Suspect]
     Indication: NEUROPATHY PERIPHERAL
     Dosage: GENERIC, 300 MG IN THE MORNING AND 200 MG IN THE EVENING
     Route: 048
  17. GABAPENTIN [Suspect]
     Indication: NERVOUS SYSTEM DISORDER
     Dosage: GENERIC, 300 MG IN THE MORNING AND 200 MG IN THE EVENING
     Route: 048
  18. GABAPENTIN [Suspect]
     Indication: LYMPHOEDEMA
     Dosage: GENERIC, 300 MG IN THE MORNING AND 200 MG IN THE EVENING
     Route: 048
  19. HYDROCHLOROTHIAZIDE [Concomitant]
     Indication: BLOOD CHOLESTEROL ABNORMAL
     Route: 048
  20. HYDROCHLOROTHIAZIDE [Concomitant]
     Indication: DIURETIC THERAPY
     Route: 048
  21. ANTIHISTIMINES [Concomitant]
  22. CHEMOTHERAPY [Concomitant]
     Dates: start: 201001
  23. BENADRYL [Concomitant]

REACTIONS (16)
  - Apparent death [Unknown]
  - Local swelling [Unknown]
  - Cyanosis [Unknown]
  - Erythema [Unknown]
  - Dyspnoea [Unknown]
  - Chest pain [Unknown]
  - Hypersensitivity [Unknown]
  - Vision blurred [Recovered/Resolved]
  - Headache [Recovered/Resolved]
  - Blood pressure increased [Unknown]
  - Vertigo [Unknown]
  - Memory impairment [Unknown]
  - Memory impairment [Unknown]
  - Drug dose omission [Not Recovered/Not Resolved]
  - Off label use [Unknown]
  - Drug ineffective [Unknown]
